FAERS Safety Report 6083655-8 (Version None)
Quarter: 2009Q1

REPORT INFORMATION
  Report Type: 
  Country: None (occurrence: None)
  Receive Date: 20090217
  Receipt Date: 20090206
  Transmission Date: 20090719
  Serious: Yes (Other)
  Sender: FDA-Public Use
  Company Number: 2009US000326

PATIENT
  Sex: 0

DRUGS (1)
  1. PROGRAF [Suspect]
     Indication: TRANSPLANT

REACTIONS (3)
  - EPSTEIN-BARR VIRAEMIA [None]
  - HEPATIC LESION [None]
  - HEPATIC NECROSIS [None]
